FAERS Safety Report 15110619 (Version 2)
Quarter: 2018Q3

REPORT INFORMATION
  Report Type: Spontaneous
  Country: JP (occurrence: JP)
  Receive Date: 20180705
  Receipt Date: 20180806
  Transmission Date: 20181010
  Serious: Yes (Hospitalization)
  Sender: FDA-Public Use
  Company Number: PHJP2018JP013520

PATIENT
  Age: 69 Year
  Sex: Male

DRUGS (3)
  1. NEORAL [Suspect]
     Active Substance: CYCLOSPORINE
     Dosage: 120 MG, QD
     Route: 048
     Dates: start: 20180626
  2. NEORAL [Suspect]
     Active Substance: CYCLOSPORINE
     Dosage: 150 MG, QD
     Route: 048
     Dates: start: 20180619, end: 20180625
  3. NEORAL [Suspect]
     Active Substance: CYCLOSPORINE
     Indication: POLYARTERITIS NODOSA
     Dosage: 120 MG, QD (BEFORE BREAKFAST)
     Route: 048
     Dates: start: 20180618, end: 20180618

REACTIONS (4)
  - Gallbladder perforation [Unknown]
  - Product use in unapproved indication [Unknown]
  - Gastrointestinal inflammation [Unknown]
  - Abdominal pain upper [Unknown]

NARRATIVE: CASE EVENT DATE: 20180630
